FAERS Safety Report 7957140-X (Version None)
Quarter: 2011Q4

REPORT INFORMATION
  Report Type: 
  Country: None (occurrence: None)
  Receive Date: 20111205
  Receipt Date: 20111121
  Transmission Date: 20120403
  Serious: Yes (Other)
  Sender: FDA-Public Use
  Company Number: BR-ROCHE-792774

PATIENT
  Sex: Female
  Weight: 70 kg

DRUGS (2)
  1. PAMELOR [Concomitant]
     Indication: HEAD DISCOMFORT
     Dosage: INDICATION: FOR HEAD DISORDER
  2. CLONAZEPAM [Suspect]
     Indication: DIZZINESS
     Dosage: FREQUENCY: 1 TABLET AT NIGHT AND HALF TABLET IN THE MORNING.
     Route: 048

REACTIONS (7)
  - DISEASE PROGRESSION [None]
  - WEIGHT INCREASED [None]
  - EYE IRRITATION [None]
  - GAIT DISTURBANCE [None]
  - THERAPEUTIC RESPONSE DECREASED [None]
  - HEAD INJURY [None]
  - FALL [None]
